FAERS Safety Report 4948174-8 (Version None)
Quarter: 2006Q1

REPORT INFORMATION
  Report Type: 
  Country: None (occurrence: None)
  Receive Date: 20060320
  Receipt Date: 20060309
  Transmission Date: 20060701
  Serious: Yes (Other)
  Sender: FDA-Public Use
  Company Number: PHBS2006JP03903

PATIENT

DRUGS (1)
  1. GLEEVEC [Suspect]
     Route: 065

REACTIONS (1)
  - GASTRITIS ATROPHIC [None]
